FAERS Safety Report 10879056 (Version 1)
Quarter: 2015Q1

REPORT INFORMATION
  Report Type: Spontaneous
  Country: US (occurrence: None)
  Receive Date: 20150224
  Receipt Date: 20150224
  Transmission Date: 20150721
  Serious: Yes (Hospitalization, Disabling)
  Sender: FDA-Public Use
  Company Number: None

PATIENT
  Age: 57 Year
  Sex: Male
  Weight: 92.99 kg

DRUGS (9)
  1. LEVAQUIN [Suspect]
     Active Substance: LEVOFLOXACIN
     Indication: URINARY TRACT INFECTION
     Dosage: 10 PILLS
     Route: 048
     Dates: start: 20140313, end: 20140318
  2. ATENOLOL. [Concomitant]
     Active Substance: ATENOLOL
  3. CALCIUM [Concomitant]
     Active Substance: CALCIUM
  4. SULFAZINE [Concomitant]
     Active Substance: SULFASALAZINE
  5. PREDNISONE. [Concomitant]
     Active Substance: PREDNISONE
  6. CPAP MACHINE [Concomitant]
  7. CONCERTA [Concomitant]
     Active Substance: METHYLPHENIDATE HYDROCHLORIDE
  8. TRAMADOL [Concomitant]
     Active Substance: TRAMADOL
  9. ESCITALOPRAM OXALATE. [Concomitant]
     Active Substance: ESCITALOPRAM OXALATE

REACTIONS (3)
  - Dysstasia [None]
  - Gait disturbance [None]
  - Arthritis reactive [None]

NARRATIVE: CASE EVENT DATE: 20140313
